FAERS Safety Report 12561839 (Version 3)
Quarter: 2016Q3

REPORT INFORMATION
  Report Type: Report from Study
  Country: KR (occurrence: KR)
  Receive Date: 20160715
  Receipt Date: 20160801
  Transmission Date: 20161109
  Serious: Yes (Other)
  Sender: FDA-Public Use
  Company Number: PHHY2016KR095079

PATIENT
  Age: 70 Year
  Sex: Male

DRUGS (15)
  1. LYRICA [Concomitant]
     Active Substance: PREGABALIN
     Indication: DIABETES MELLITUS
     Dosage: 150 MG, BID
     Route: 065
     Dates: start: 20140429
  2. SINGULAIR [Concomitant]
     Active Substance: MONTELUKAST SODIUM
     Indication: ASTHMA PROPHYLAXIS
     Dosage: 10 MG, QD
     Route: 065
     Dates: start: 20151006
  3. VASTINAN MR [Concomitant]
     Indication: ANGINA UNSTABLE
     Dosage: 35 MG, BID
     Route: 065
     Dates: start: 20150223
  4. ONBREZ BREEZHALER [Suspect]
     Active Substance: INDACATEROL
     Indication: CHRONIC OBSTRUCTIVE PULMONARY DISEASE
     Dosage: 150 UG, UNK (RESPIRATORY INHALATION)
     Route: 055
     Dates: start: 20151012
  5. AMARYL [Concomitant]
     Active Substance: GLIMEPIRIDE
     Indication: DIABETES MELLITUS
     Dosage: 1 MG, BID
     Route: 065
  6. AMODIPIN [Concomitant]
     Indication: HYPERTENSION
     Dosage: 7.5 MG, QD
     Route: 065
  7. ARONAMIN C PLUS [Concomitant]
     Indication: HYPOVITAMINOSIS
     Dosage: 1 DF, BID
     Route: 065
     Dates: start: 20141219
  8. DICHLOZID [Concomitant]
     Indication: HYPERTENSION
     Dosage: 12.5 MG, QD
     Route: 065
  9. GLUCODOWN [Concomitant]
     Indication: DIABETES MELLITUS
     Dosage: 750 MG, QD
     Route: 065
     Dates: start: 20140704
  10. GODEX [Concomitant]
     Indication: HEPATOCELLULAR CARCINOMA
     Dosage: 1 DF, BID
     Route: 065
     Dates: start: 20110831
  11. MUCOSTA [Concomitant]
     Active Substance: REBAMIPIDE
     Indication: PROPHYLAXIS
     Dosage: 100 MG, TID
     Route: 065
     Dates: start: 20160229, end: 20160305
  12. MUTERAN [Concomitant]
     Active Substance: ACETYLCYSTEINE
     Indication: ANTITUSSIVE THERAPY
     Dosage: 100 MG, TID
     Route: 065
     Dates: start: 20151006, end: 20160331
  13. DIABEX S.R. [Concomitant]
     Active Substance: METFORMIN HYDROCHLORIDE
     Indication: DIABETES MELLITUS
     Dosage: 500 MG, QD
     Route: 065
     Dates: start: 20121213
  14. ASPIRIN//ACETYLSALICYLIC ACID [Concomitant]
     Active Substance: ASPIRIN
     Indication: ANGINA UNSTABLE
     Dosage: 100 MG, QD
     Route: 065
     Dates: start: 20150313
  15. ATORVA [Concomitant]
     Indication: ANGINA UNSTABLE
     Dosage: 20 MG, QD
     Route: 065
     Dates: start: 20150223

REACTIONS (6)
  - Gamma-glutamyltransferase increased [Unknown]
  - Platelet count decreased [Unknown]
  - Bronchitis [Recovered/Resolved]
  - Bronchiolitis [Recovered/Resolved]
  - Aspartate aminotransferase increased [Unknown]
  - Blood alkaline phosphatase increased [Unknown]

NARRATIVE: CASE EVENT DATE: 20151109
